FAERS Safety Report 25725934 (Version 8)
Quarter: 2025Q4

REPORT INFORMATION
  Report Type: Report from Study
  Country: US (occurrence: US)
  Receive Date: 20250826
  Receipt Date: 20251211
  Transmission Date: 20260117
  Serious: No
  Sender: IPSEN BIOPHARMACEUTICALS, INC.
  Company Number: US-IPSEN Group, Research and Development-2025-20488

PATIENT
  Age: 34 Year
  Sex: Female
  Weight: 58 kg

DRUGS (3)
  1. SOHONOS [Suspect]
     Active Substance: PALOVAROTENE
     Indication: Fibrodysplasia ossificans progressiva
     Dosage: 1 TIME A DAY
     Route: 048
     Dates: start: 20241023
  2. SOHONOS [Suspect]
     Active Substance: PALOVAROTENE
     Dosage: 1 TIME A DAY
     Route: 048
     Dates: start: 202410
  3. MIRENA IUD SYS [Concomitant]
     Indication: Heavy menstrual bleeding

REACTIONS (3)
  - Condition aggravated [Unknown]
  - Condition aggravated [Recovered/Resolved]
  - Product dose omission issue [Unknown]

NARRATIVE: CASE EVENT DATE: 20250809
